FAERS Safety Report 6407120-0 (Version None)
Quarter: 2009Q4

REPORT INFORMATION
  Report Type: 
  Country: None (occurrence: None)
  Receive Date: 20091014
  Receipt Date: 20091002
  Transmission Date: 20100525
  Serious: Yes (Other)
  Sender: FDA-Public Use
  Company Number: 8052916

PATIENT
  Age: 41 Year
  Sex: Male

DRUGS (3)
  1. LEVETIRACETAM [Suspect]
     Dosage: 750 MG
  2. VALPROATE SODIUM [Concomitant]
  3. LAMOTRIGINE [Concomitant]

REACTIONS (2)
  - GRAND MAL CONVULSION [None]
  - ILEOSTOMY [None]
